FAERS Safety Report 4631650-5 (Version None)
Quarter: 2005Q2

REPORT INFORMATION
  Report Type: 
  Country: None (occurrence: None)
  Receive Date: 20050407
  Receipt Date: 20050329
  Transmission Date: 20051028
  Serious: Yes (Death, Hospitalization)
  Sender: FDA-Public Use
  Company Number: RENA-11329

PATIENT
  Age: 74 Year
  Sex: Female

DRUGS (4)
  1. PHOSBLOCK -250 MG TABLET [Suspect]
     Indication: HYPERPHOSPHATAEMIA
     Dosage: 9 G DAILY PO
     Route: 048
     Dates: end: 20050223
  2. PHOSBLOCK -250 MG TABLET [Suspect]
     Indication: HYPERPHOSPHATAEMIA
     Dosage: 6 G DAILY PO
     Route: 048
  3. PHOSBLOCK -250 MG TABLET [Suspect]
     Indication: HYPERPHOSPHATAEMIA
     Dosage: 3 G DAILY PO
     Route: 048
     Dates: start: 20040401
  4. CALCIUM CARBONATE [Concomitant]

REACTIONS (3)
  - GASTROINTESTINAL HAEMORRHAGE [None]
  - HAEMATEMESIS [None]
  - ILEUS [None]
